FAERS Safety Report 6151012-1 (Version None)
Quarter: 2009Q2

REPORT INFORMATION
  Report Type: 
  Country: None (occurrence: None)
  Receive Date: 20090410
  Receipt Date: 20090324
  Transmission Date: 20091009
  Serious: No
  Sender: FDA-Public Use
  Company Number: A0770014A

PATIENT
  Age: 60 Year
  Sex: Female

DRUGS (5)
  1. TYKERB [Suspect]
     Indication: BREAST CANCER
     Dosage: 5CAP PER DAY
     Route: 048
     Dates: start: 20090214
  2. XELODA [Concomitant]
  3. COUMADIN [Concomitant]
  4. M.V.I. [Concomitant]
  5. CHEMOTHERAPY [Concomitant]
     Dates: start: 20060101

REACTIONS (8)
  - CONSTIPATION [None]
  - DIARRHOEA [None]
  - DRY SKIN [None]
  - HYPOAESTHESIA [None]
  - INTESTINAL FUNCTIONAL DISORDER [None]
  - LIP DRY [None]
  - PAIN [None]
  - PAIN IN EXTREMITY [None]
